FAERS Safety Report 9744625 (Version 2)
Quarter: 2014Q1

REPORT INFORMATION
  Report Type: Spontaneous
  Country: US (occurrence: US)
  Receive Date: 20131210
  Receipt Date: 20140108
  Transmission Date: 20141002
  Serious: Yes (Hospitalization)
  Sender: FDA-Public Use
  Company Number: US-GILEAD-2013-0089518

PATIENT
  Sex: Male

DRUGS (2)
  1. LETAIRIS [Suspect]
     Indication: PRODUCT USED FOR UNKNOWN INDICATION
     Dosage: 10 MG, QD
     Route: 048
     Dates: start: 20131020
  2. OXYGEN [Concomitant]

REACTIONS (5)
  - Depression [Unknown]
  - Eating disorder [Unknown]
  - Dysstasia [Unknown]
  - Bed rest [Unknown]
  - Mobility decreased [Unknown]
